FAERS Safety Report 6724320-0 (Version None)
Quarter: 2010Q2

REPORT INFORMATION
  Report Type: 
  Country: None (occurrence: None)
  Receive Date: 20100513
  Receipt Date: 20100506
  Transmission Date: 20101027
  Serious: Yes (Other)
  Sender: FDA-Public Use
  Company Number: CHPA2010US07990

PATIENT
  Age: 63 Year
  Sex: Female

DRUGS (2)
  1. EXCEDRIN TENSION HEADACHE(NCH) [Suspect]
     Indication: MIGRAINE
     Dosage: UNK, PRN
     Route: 048
  2. EXCEDRIN TENSION HEADACHE(NCH) [Suspect]
     Dosage: UNK, QD
     Route: 048

REACTIONS (4)
  - BREAST CANCER [None]
  - HYPERTENSION [None]
  - INTENTIONAL DRUG MISUSE [None]
  - OVARIAN CANCER [None]
